FAERS Safety Report 8466143-0 (Version None)
Quarter: 2012Q2

REPORT INFORMATION
  Report Type: 
  Country: None (occurrence: None)
  Receive Date: 20120626
  Receipt Date: 20120620
  Transmission Date: 20120825
  Serious: Yes (Death)
  Sender: FDA-Public Use
  Company Number: US-CELGENEUS-163-21880-12063349

PATIENT
  Sex: Male
  Weight: 92.071 kg

DRUGS (33)
  1. ASPIRIN [Concomitant]
     Dosage: 81 MILLIGRAM
     Route: 048
  2. ATENOLOL [Concomitant]
     Dosage: 50 MILLIGRAM
     Route: 048
  3. FOSAMAX [Concomitant]
     Dosage: 70 MILLIGRAM
     Route: 048
  4. LORAZEPAM [Concomitant]
     Indication: NAUSEA
     Dosage: .5 MILLIGRAM
     Route: 048
  5. CALCIUM CARBONATE [Concomitant]
     Dosage: 600MG-400
     Route: 048
  6. CYANOCOBALAMIN [Concomitant]
     Dosage: 2500MCG-2000MCG
     Route: 060
  7. LEVAQUIN [Concomitant]
     Dosage: 750 MILLIGRAM
     Route: 048
  8. MEGESTROL ACETATE [Concomitant]
     Dosage: 15 MILLILITER
     Route: 048
  9. REVLIMID [Suspect]
     Indication: MULTIPLE MYELOMA
     Dosage: 25 MILLIGRAM
     Route: 048
     Dates: start: 20090601, end: 20090101
  10. REVLIMID [Suspect]
     Dosage: 25 MILLIGRAM
     Route: 048
     Dates: start: 20110406, end: 20110101
  11. IBUPROFEN [Concomitant]
     Indication: PAIN
     Dosage: 600 MILLIGRAM
     Route: 048
  12. OMEPRAZOLE [Concomitant]
     Dosage: 40 MILLIGRAM
     Route: 048
  13. PROCHLORPERAZINE MALEATE [Concomitant]
     Indication: NAUSEA
     Dosage: 10 MILLIGRAM
     Route: 048
  14. RANITIDINE HCL [Concomitant]
     Dosage: 150 MILLIGRAM
     Route: 048
  15. ROXAROL [Concomitant]
     Indication: PAIN
     Dosage: 15 MILLIGRAM
     Route: 048
  16. ROXAROL [Concomitant]
     Dosage: 30 MILLIGRAM
     Route: 048
  17. CYMBALTA [Concomitant]
     Dosage: 20 MILLIGRAM
     Route: 048
  18. MULTIPLE VITAMIN [Concomitant]
     Dosage: 1 TABLET
     Route: 048
  19. DUONEB [Concomitant]
     Dosage: 0.5-3MG/3 AMPUL, 1 PUFF
     Route: 055
  20. KADIAN [Concomitant]
     Dosage: 50 MILLIGRAM
     Route: 048
  21. LISINOPRIL [Concomitant]
     Dosage: 2.5 MILLIGRAM
     Route: 048
  22. OXYCODONE HCL [Concomitant]
     Dosage: 3 TABLET
     Route: 048
  23. OXYCODONE HCL [Concomitant]
     Dosage: 30 MILLIGRAM
     Route: 048
  24. PROCHLORPERAZINE MALEATE [Concomitant]
     Dosage: 30 MILLIGRAM
     Route: 048
  25. BACTRIM DS [Concomitant]
     Dosage: 800-160MG
     Route: 048
  26. CHOLECALCIFEROL [Concomitant]
     Dosage: 5000 UNIT
     Route: 048
  27. LOMOTIL [Concomitant]
     Dosage: 2.5-.025MG
     Route: 048
  28. NYSTATIN [Concomitant]
     Dosage: 100000/G, 1 APPLICATION
     Route: 061
  29. PROAIR HFA [Concomitant]
     Dosage: 90MCG, 1 INHALATION
     Route: 055
  30. PROAIR HFA [Concomitant]
     Dosage: 30 MILLIGRAM
     Route: 048
  31. RANITIDINE HCL [Concomitant]
     Dosage: 30 MILLIGRAM
     Route: 048
  32. MAGNESIUM OXIDE [Concomitant]
     Dosage: 2 TABLET
     Route: 048
  33. METFORMIN HCL [Concomitant]
     Dosage: 500 MILLIGRAM
     Route: 048

REACTIONS (1)
  - DEATH [None]
